FAERS Safety Report 14416445 (Version 1)
Quarter: 2018Q1

REPORT INFORMATION
  Report Type: Spontaneous
  Country: PL (occurrence: PL)
  Receive Date: 20180122
  Receipt Date: 20180122
  Transmission Date: 20180509
  Serious: Yes (Other)
  Sender: FDA-Public Use
  Company Number: PL-ACCORD-062788

PATIENT
  Age: 68 Year
  Sex: Male

DRUGS (1)
  1. GEMCITABINE/GEMCITABINE HYDROCHLORIDE [Suspect]
     Active Substance: GEMCITABINE\GEMCITABINE HYDROCHLORIDE
     Indication: ADENOCARCINOMA PANCREAS
     Dosage: ON DAY 1, 8 AND 15 ?DOSE REDUCED AND LATER WITHDRAWN

REACTIONS (5)
  - Disease progression [Unknown]
  - Anaemia [Unknown]
  - Adenocarcinoma pancreas [None]
  - Thrombocytopenia [Recovering/Resolving]
  - Neutropenia [Unknown]
